FAERS Safety Report 5235651-8 (Version None)
Quarter: 2007Q1

REPORT INFORMATION
  Report Type: 
  Country: None (occurrence: None)
  Receive Date: 20070212
  Receipt Date: 20070207
  Transmission Date: 20070707
  Serious: Yes (Hospitalization)
  Sender: FDA-Public Use
  Company Number: FR-GLAXOSMITHKLINE-B0450819A

PATIENT
  Age: 50 Year
  Sex: Female

DRUGS (5)
  1. AUGMENTIN '125' [Suspect]
     Route: 048
     Dates: start: 20061125, end: 20061127
  2. PYOSTACINE [Suspect]
     Route: 048
     Dates: start: 20061115, end: 20061125
  3. TAVANIC [Suspect]
     Route: 048
     Dates: start: 20061125, end: 20061127
  4. SINTROM [Suspect]
     Dosage: 1TAB PER DAY
     Route: 048
     Dates: end: 20061127
  5. TAXOTERE [Concomitant]
     Indication: BREAST CANCER
     Route: 065

REACTIONS (8)
  - C-REACTIVE PROTEIN INCREASED [None]
  - DRUG INTERACTION [None]
  - HAEMATOMA [None]
  - HAEMOGLOBIN DECREASED [None]
  - INTERNATIONAL NORMALISED RATIO INCREASED [None]
  - OVERDOSE [None]
  - PLATELET COUNT DECREASED [None]
  - PROTHROMBIN LEVEL DECREASED [None]
